FAERS Safety Report 23761786 (Version 1)
Quarter: 2024Q2

REPORT INFORMATION
  Report Type: Spontaneous
  Country: RS (occurrence: RS)
  Receive Date: 20240419
  Receipt Date: 20240419
  Transmission Date: 20240715
  Serious: Yes (Other)
  Sender: FDA-Public Use
  Company Number: RS-AMGEN-SRBSP2024075197

PATIENT
  Age: 53 Year
  Sex: Male
  Weight: 94 kg

DRUGS (20)
  1. VECTIBIX [Suspect]
     Active Substance: PANITUMUMAB
     Indication: Rectosigmoid cancer metastatic
     Dosage: 570 MILLIGRAM, Q2WK, IN 500 ML NACL 0.9% IV(6 MILLIGRAM/KILOGRAM)
     Route: 065
     Dates: start: 20230822
  2. VECTIBIX [Suspect]
     Active Substance: PANITUMUMAB
     Dosage: 530 MILLIGRAM, Q2WK, IN 500 ML NACL 0.9% IV(6 MILLIGRAM/KILOGRAM)
     Route: 065
     Dates: start: 20230919
  3. VECTIBIX [Suspect]
     Active Substance: PANITUMUMAB
     Dosage: 500 MILLIGRAM, Q2WK, IN 500 ML NACL 0.9% IV(6 MILLIGRAM/KILOGRAM)
     Route: 065
     Dates: start: 20231003
  4. VECTIBIX [Suspect]
     Active Substance: PANITUMUMAB
     Dosage: 460 MILLIGRAM, Q2WK, IN 500 ML NACL 0.9% IV(6 MILLIGRAM/KILOGRAM)
     Route: 065
     Dates: start: 20231024
  5. VECTIBIX [Suspect]
     Active Substance: PANITUMUMAB
     Dosage: 440 MILLIGRAM, Q2WK, IN 500 ML NACL 0.9% IV(6 MILLIGRAM/KILOGRAM)
     Route: 065
     Dates: start: 20231107
  6. VECTIBIX [Suspect]
     Active Substance: PANITUMUMAB
     Dosage: 580 MILLIGRAM, Q2WK, IN 500 ML NACL 0.9% IV(6 MILLIGRAM/KILOGRAM)
     Route: 065
     Dates: start: 20231215
  7. CAPECITABINE [Suspect]
     Active Substance: CAPECITABINE
     Indication: Rectosigmoid cancer metastatic
     Dosage: 500 MILLIGRAM, Q2WK, 4+0+4
     Route: 048
     Dates: start: 20230822
  8. CAPECITABINE [Suspect]
     Active Substance: CAPECITABINE
     Dosage: 500 MILLIGRAM, Q2WK, 3+0+4
     Route: 048
     Dates: start: 20231003
  9. CAPECITABINE [Suspect]
     Active Substance: CAPECITABINE
     Dosage: 500 MILLIGRAM, Q2WK, 2+0+3
     Route: 048
     Dates: start: 20231024
  10. CAPECITABINE [Suspect]
     Active Substance: CAPECITABINE
     Dosage: 500 MILLIGRAM, Q2WK, 3+0+3
     Route: 048
     Dates: start: 20231215
  11. CAPECITABINE [Suspect]
     Active Substance: CAPECITABINE
     Dosage: 500 MILLIGRAM, Q2WK, 2+0+2
     Route: 048
     Dates: start: 20240329
  12. OXALIPLATIN [Suspect]
     Active Substance: OXALIPLATIN
     Indication: Rectosigmoid cancer metastatic
     Dosage: 280 MILLIGRAM, Q2WK, IN 500 ML GLUCOSE 5% IV
     Route: 042
     Dates: start: 20230822
  13. OXALIPLATIN [Suspect]
     Active Substance: OXALIPLATIN
     Dosage: 270 MILLIGRAM, Q2WK, IN 500 ML GLUCOSE 5% IV
     Route: 042
     Dates: start: 20230912
  14. OXALIPLATIN [Suspect]
     Active Substance: OXALIPLATIN
     Dosage: 260 MILLIGRAM, Q2WK, IN 500 ML GLUCOSE 5% IV
     Route: 042
     Dates: start: 20231003
  15. OXALIPLATIN [Suspect]
     Active Substance: OXALIPLATIN
     Dosage: 250 MILLIGRAM, Q2WK, IN 500 ML GLUCOSE 5% IV
     Route: 042
     Dates: start: 20231024
  16. OXALIPLATIN [Suspect]
     Active Substance: OXALIPLATIN
     Dosage: 270 MILLIGRAM, Q2WK, IN 500 ML GLUCOSE 5% IV
     Route: 042
     Dates: start: 20231215
  17. OXALIPLATIN [Suspect]
     Active Substance: OXALIPLATIN
     Dosage: 200 MILLIGRAM, Q2WK, IN 500 ML GLUCOSE 5% IV
     Route: 042
     Dates: start: 20240105
  18. ONDANSETRON HYDROCHLORIDE [Concomitant]
     Active Substance: ONDANSETRON HYDROCHLORIDE
     Indication: Product used for unknown indication
     Dosage: 4 MILLIGRAM,  IN 100ML NACL 0.9% IV, DURING 15 MIN
     Route: 042
     Dates: start: 20230822
  19. DEXAMETHASONE [Concomitant]
     Active Substance: DEXAMETHASONE
     Indication: Product used for unknown indication
     Dosage: 4 MILLIGRAM,  IN 100ML NACL 0.9% IV
     Route: 042
     Dates: start: 20230822
  20. CONTROLOC [Concomitant]
     Active Substance: PANTOPRAZOLE SODIUM
     Indication: Product used for unknown indication
     Dosage: 20 MILLIGRAM, 20MG 1X1 IV BOLUS
     Route: 042

REACTIONS (5)
  - Rectosigmoid cancer metastatic [Recovered/Resolved]
  - Off label use [Unknown]
  - Rash [Unknown]
  - Weight decreased [Not Recovered/Not Resolved]
  - Gastrointestinal disorder [Not Recovered/Not Resolved]

NARRATIVE: CASE EVENT DATE: 20230101
